FAERS Safety Report 8559594-7 (Version None)
Quarter: 2012Q3

REPORT INFORMATION
  Report Type: 
  Country: None (occurrence: None)
  Receive Date: 20120727
  Receipt Date: 20120727
  Transmission Date: 20120928
  Serious: No
  Sender: FDA-Public Use
  Company Number: None

PATIENT
  Age: 71 Year
  Sex: Female
  Weight: 58.514 kg

DRUGS (2)
  1. PREDNISONE TAB [Suspect]
     Indication: PRURITUS
     Dosage: 20 MG 3 TABS 1ST DAY PO; 20 MG 2 TAB NEXT 4 DAYS PO
     Route: 048
     Dates: start: 20120723, end: 20120723
  2. PREDNISONE TAB [Suspect]
     Indication: PRURITUS
     Dosage: 20 MG 3 TABS 1ST DAY PO; 20 MG 2 TAB NEXT 4 DAYS PO
     Route: 048
     Dates: start: 20120724, end: 20120725

REACTIONS (5)
  - NAUSEA [None]
  - RASH MACULAR [None]
  - FEELING HOT [None]
  - TREMOR [None]
  - HEART RATE INCREASED [None]
